FAERS Safety Report 8264200-5 (Version None)
Quarter: 2012Q2

REPORT INFORMATION
  Report Type: 
  Country: None (occurrence: None)
  Receive Date: 20120403
  Receipt Date: 20120327
  Transmission Date: 20120825
  Serious: Yes (Death, Hospitalization)
  Sender: FDA-Public Use
  Company Number: 2012-029751

PATIENT
  Age: 81 Year
  Sex: Male

DRUGS (2)
  1. ASPIRIN [Suspect]
     Indication: MYOCARDIAL ISCHAEMIA
     Dosage: 100 MG, QD, ORAL
     Route: 048
  2. CLOPIDOGREL [Suspect]
     Indication: MYOCARDIAL ISCHAEMIA
     Dosage: 75 MG, QD, ORAL
     Route: 048

REACTIONS (6)
  - ROAD TRAFFIC ACCIDENT [None]
  - BRAIN MIDLINE SHIFT [None]
  - SUBDURAL HAEMATOMA [None]
  - CEREBELLAR HAEMORRHAGE [None]
  - HEAD INJURY [None]
  - HEADACHE [None]
